FAERS Safety Report 5320935-5 (Version None)
Quarter: 2007Q2

REPORT INFORMATION
  Report Type: 
  Country: None (occurrence: None)
  Receive Date: 20070509
  Receipt Date: 20070430
  Transmission Date: 20071010
  Serious: Yes (Other)
  Sender: FDA-Public Use
  Company Number: IE-ABBOTT-06P-229-0342445-00

PATIENT
  Sex: Female
  Weight: 124.1 kg

DRUGS (4)
  1. REDUCTIL 10MG [Suspect]
     Indication: DRUG USE FOR UNKNOWN INDICATION
     Dates: start: 20030901, end: 20041101
  2. REDUCTIL 10MG [Suspect]
     Dates: start: 20050801, end: 20060101
  3. REDUCTIL 10MG [Suspect]
     Dates: start: 20060718, end: 20060901
  4. BISOPROLOL FUMARATE [Concomitant]
     Indication: BLOOD PRESSURE MANAGEMENT
     Route: 048
     Dates: start: 20040101

REACTIONS (2)
  - HYPOAESTHESIA ORAL [None]
  - TONGUE DISORDER [None]
